FAERS Safety Report 8972574 (Version 1)
Quarter: 2012Q4

REPORT INFORMATION
  Report Type: 
  Country: US (occurrence: US)
  Receive Date: 20121219
  Receipt Date: 20121219
  Transmission Date: 20130627
  Serious: Yes (Hospitalization)
  Sender: FDA-Public Use
  Company Number: US-BAYER-2012-131263

PATIENT
  Age: 29 Year
  Sex: Female

DRUGS (6)
  1. YASMIN [Suspect]
  2. NICOTINE [Concomitant]
  3. VICODIN [Concomitant]
  4. LIDODERM [Concomitant]
  5. XANAX [Concomitant]
  6. NAPROSYN [Concomitant]

REACTIONS (2)
  - Pulmonary embolism [None]
  - Off label use [None]
